FAERS Safety Report 24994118 (Version 2)
Quarter: 2025Q1

REPORT INFORMATION
  Report Type: Spontaneous
  Country: CN (occurrence: CN)
  Receive Date: 20250221
  Receipt Date: 20250305
  Transmission Date: 20250409
  Serious: Yes (Hospitalization, Disabling, Other)
  Sender: BRISTOL-MYERS SQUIBB COMPANY
  Company Number: CN-MLMSERVICE-20250206-PI389887-00079-1

PATIENT
  Age: 34 Year
  Sex: Female

DRUGS (4)
  1. PACLITAXEL [Suspect]
     Active Substance: PACLITAXEL
     Indication: Pancreatic carcinoma
     Dates: start: 20230814, end: 20230831
  2. TORIPALIMAB [Interacting]
     Active Substance: TORIPALIMAB
     Indication: Pancreatic carcinoma
     Dates: start: 20230814, end: 20230831
  3. CARBAMAZEPINE [Interacting]
     Active Substance: CARBAMAZEPINE
     Indication: Neuralgia
     Dates: start: 20230818, end: 20230831
  4. TEGAFUR [Concomitant]
     Active Substance: TEGAFUR
     Indication: Pancreatic carcinoma
     Dates: start: 20230814, end: 20230831

REACTIONS (2)
  - SJS-TEN overlap [Recovered/Resolved]
  - Drug interaction [Recovered/Resolved]

NARRATIVE: CASE EVENT DATE: 20230801
